FAERS Safety Report 7955093-1 (Version None)
Quarter: 2011Q4

REPORT INFORMATION
  Report Type: 
  Country: None (occurrence: None)
  Receive Date: 20111202
  Receipt Date: 20111201
  Transmission Date: 20120403
  Serious: Yes (Death, Hospitalization, Other)
  Sender: FDA-Public Use
  Company Number: JP-B.I. PHARMACEUTICALS,INC./RIDGEFIELD-2011-BP-26366NB

PATIENT
  Sex: Male
  Weight: 61.8 kg

DRUGS (6)
  1. NORVASC [Concomitant]
     Indication: HYPERTENSION
     Dosage: 5 MG
     Route: 048
     Dates: start: 20020411, end: 20111114
  2. PERSANTIN [Suspect]
     Indication: MYOCARDIAL ISCHAEMIA
     Dosage: 75 MG
     Route: 048
     Dates: start: 20020411, end: 20111114
  3. MENIACE [Concomitant]
     Indication: DIZZINESS
     Route: 048
     Dates: start: 20101122
  4. DIGOXIN [Concomitant]
     Indication: ATRIAL FIBRILLATION
     Dosage: 0.125 G
     Route: 048
     Dates: start: 20070315
  5. MUCODYNE [Concomitant]
     Indication: BRONCHITIS CHRONIC
     Route: 048
     Dates: start: 20020411
  6. ADENOSINE [Concomitant]
     Indication: DIZZINESS
     Dosage: 3 G
     Route: 048
     Dates: start: 20101122

REACTIONS (2)
  - MOUTH HAEMORRHAGE [None]
  - CEREBELLAR HAEMORRHAGE [None]
